FAERS Safety Report 4315996-6 (Version None)
Quarter: 2004Q1

REPORT INFORMATION
  Report Type: 
  Country: None (occurrence: None)
  Receive Date: 20040310
  Receipt Date: 20040227
  Transmission Date: 20041129
  Serious: Yes (Death, Hospitalization)
  Sender: FDA-Public Use
  Company Number: 2004004272

PATIENT
  Age: 62 Year
  Sex: Male
  Weight: 55.2 kg

DRUGS (7)
  1. VIAGRA [Suspect]
     Indication: PULMONARY HYPERTENSION
     Dosage: 200 MG QID ORAL
     Route: 048
     Dates: start: 20030520, end: 20040110
  2. WARFARIN SODIUM [Concomitant]
  3. FUROSEMIDE [Concomitant]
  4. PREDNISONE [Concomitant]
  5. POTASSIUM CHLORIDE [Concomitant]
  6. BENDROFLUMETHIAZIDE [Concomitant]
  7. SPIRONOLACTONE [Concomitant]

REACTIONS (10)
  - BLOOD POTASSIUM INCREASED [None]
  - BLOOD PRESSURE DECREASED [None]
  - BRADYCARDIA [None]
  - BUNDLE BRANCH BLOCK RIGHT [None]
  - CARDIAC ARREST [None]
  - CARDIAC FAILURE CHRONIC [None]
  - DYSPNOEA [None]
  - FALL [None]
  - OEDEMA PERIPHERAL [None]
  - WEIGHT DECREASED [None]
